FAERS Safety Report 4607899-4 (Version None)
Quarter: 2005Q1

REPORT INFORMATION
  Report Type: 
  Country: None (occurrence: None)
  Receive Date: 20050310
  Receipt Date: 20050224
  Transmission Date: 20050727
  Serious: Yes (Hospitalization)
  Sender: FDA-Public Use
  Company Number: 2004AP05987

PATIENT
  Age: 79 Year
  Sex: Male

DRUGS (12)
  1. MEROPEN [Suspect]
     Indication: CELLULITIS
     Dosage: 0.5 G DAILY IVD
     Route: 041
     Dates: start: 20040913, end: 20040915
  2. ROCEPHIN [Suspect]
     Indication: CELLULITIS
     Dosage: 2 G DAILY IVD
     Route: 041
     Dates: start: 20040905, end: 20050910
  3. GENTACIN [Suspect]
     Indication: CELLULITIS
     Dosage: 80 MG DAILY IVD
     Route: 041
     Dates: start: 20040905, end: 20050910
  4. FLUMARIN [Concomitant]
     Indication: CELLULITIS
     Dosage: 2 G DAILY IVD
     Route: 042
     Dates: start: 20040910, end: 20040913
  5. PROSTANDIN [Suspect]
     Indication: ARTERIOSCLEROSIS
     Dosage: 40 UG DAILY IVD
     Route: 041
     Dates: start: 20040913, end: 20040915
  6. ALDACTONE-A [Concomitant]
  7. FLIVAS [Concomitant]
  8. CLARITIN [Concomitant]
  9. MELBIN [Concomitant]
  10. MYONAL [Concomitant]
  11. UBRETID [Concomitant]
  12. PENFILL N [Concomitant]

REACTIONS (4)
  - ARTERIOSCLEROSIS [None]
  - FACE OEDEMA [None]
  - INTERSTITIAL LUNG DISEASE [None]
  - PNEUMONIA ASPIRATION [None]
